FAERS Safety Report 12439460 (Version 1)
Quarter: 2016Q2

REPORT INFORMATION
  Report Type: Spontaneous
  Country: BR (occurrence: BR)
  Receive Date: 20160606
  Receipt Date: 20160606
  Transmission Date: 20160815
  Serious: Yes (Hospitalization, Other)
  Sender: FDA-Public Use
  Company Number: BR-PFIZER INC-2016282939

PATIENT
  Age: 66 Year
  Sex: Female

DRUGS (5)
  1. FRONTAL [Suspect]
     Active Substance: ALPRAZOLAM
     Indication: ANXIETY
     Dosage: 0.25 MG, UNSPECIFIED FREQUENCY
     Route: 048
     Dates: start: 1986
  2. FRONTAL [Suspect]
     Active Substance: ALPRAZOLAM
     Dosage: TWO TABLETS OF 2MG (4 MG), 2X/DAY (TWO TABLETS IN THE MORNING AND TWO TABLETS AT NIGHT)
     Route: 048
  3. PRISTIQ EXTENDED-RELEASE [Concomitant]
     Active Substance: DESVENLAFAXINE SUCCINATE
     Indication: DEPRESSION
     Dosage: UNK
     Dates: start: 2014
  4. ATORVASTATIN [Concomitant]
     Active Substance: ATORVASTATIN
     Indication: BLOOD CHOLESTEROL
     Dosage: 20 MG, UNK
  5. ATORVASTATIN [Concomitant]
     Active Substance: ATORVASTATIN
     Indication: BLOOD PRESSURE MEASUREMENT

REACTIONS (11)
  - Tooth loss [Recovered/Resolved]
  - Osteoarthritis [Unknown]
  - Intervertebral disc degeneration [Not Recovered/Not Resolved]
  - Fractured sacrum [Recovered/Resolved]
  - Pyelonephritis [Unknown]
  - Pain [Unknown]
  - Osteoporosis [Not Recovered/Not Resolved]
  - Memory impairment [Unknown]
  - Confusional state [Unknown]
  - Exostosis [Not Recovered/Not Resolved]
  - Femur fracture [Recovered/Resolved]

NARRATIVE: CASE EVENT DATE: 20040424
